FAERS Safety Report 19554087 (Version 1)
Quarter: 2021Q3

REPORT INFORMATION
  Report Type: Spontaneous
  Country: US (occurrence: US)
  Receive Date: 20210715
  Receipt Date: 20210715
  Transmission Date: 20211014
  Serious: Yes (Other)
  Sender: FDA-Public Use
  Company Number: NVSC2021US151097

PATIENT
  Sex: Female

DRUGS (4)
  1. XGEVA [Suspect]
     Active Substance: DENOSUMAB
     Indication: PRODUCT USED FOR UNKNOWN INDICATION
     Dosage: UNK
     Route: 065
     Dates: start: 20161201
  2. CALCIUM [Concomitant]
     Active Substance: CALCIUM
     Indication: PRODUCT USED FOR UNKNOWN INDICATION
     Dosage: UNK 1200
     Route: 065
  3. LETROZOLE. [Suspect]
     Active Substance: LETROZOLE
     Indication: BREAST CANCER METASTATIC
     Dosage: 125 MG (3WEEKS ON 1 WEEK OFF)
     Route: 065
     Dates: start: 20161201
  4. IBRANCE [Suspect]
     Active Substance: PALBOCICLIB
     Indication: BREAST CANCER METASTATIC
     Dosage: UNK
     Route: 065
     Dates: start: 20161201

REACTIONS (8)
  - Dyspepsia [Unknown]
  - Cervical plexus lesion [Unknown]
  - Neuralgia [Recovered/Resolved]
  - Headache [Unknown]
  - Bone pain [Unknown]
  - Nausea [Recovered/Resolved]
  - Flatulence [Unknown]
  - Groin pain [Unknown]
